FAERS Safety Report 9493994 (Version 2)
Quarter: 2013Q4

REPORT INFORMATION
  Report Type: Report from Study
  Country: CO (occurrence: CO)
  Receive Date: 20130903
  Receipt Date: 20131017
  Transmission Date: 20140711
  Serious: Yes (Hospitalization)
  Sender: FDA-Public Use
  Company Number: CO-ROCHE-1268487

PATIENT
  Age: 50 Year
  Sex: Male

DRUGS (1)
  1. VALIXA [Suspect]
     Indication: INFECTION PROPHYLAXIS
     Route: 048
     Dates: start: 20130609

REACTIONS (2)
  - Gastroenteritis [Recovered/Resolved]
  - Gastric ulcer [Recovered/Resolved]
